FAERS Safety Report 24088855 (Version 3)
Quarter: 2025Q1

REPORT INFORMATION
  Report Type: Spontaneous
  Country: DE (occurrence: DE)
  Receive Date: 20240715
  Receipt Date: 20250303
  Transmission Date: 20250408
  Serious: Yes (Hospitalization, Other)
  Sender: MERCK SHARP & DOHME LLC
  Company Number: None

PATIENT
  Sex: Male
  Weight: 79 kg

DRUGS (6)
  1. PEMBROLIZUMAB [Suspect]
     Active Substance: PEMBROLIZUMAB
     Indication: Oesophageal adenocarcinoma
     Dosage: DOSE DESCRIPTION : 200 MG FLAT DOSE, IV, D1/D22/D43 PRE-AND POST OP, AFTERWARDS D1 Q3W?DAILY DOSE...
     Route: 042
     Dates: start: 20231106, end: 20240610
  2. FLUOROURACIL [Suspect]
     Active Substance: FLUOROURACIL
     Indication: Oesophageal adenocarcinoma
     Route: 042
     Dates: start: 20231106, end: 20240404
  3. OXALIPLATIN [Suspect]
     Active Substance: OXALIPLATIN
     Indication: Oesophageal adenocarcinoma
     Route: 042
     Dates: start: 20231106, end: 20240404
  4. DOCETAXEL [Suspect]
     Active Substance: DOCETAXEL
     Indication: Oesophageal adenocarcinoma
     Route: 042
     Dates: start: 20231106, end: 20240404
  5. TRASTUZUMAB [Suspect]
     Active Substance: TRASTUZUMAB
     Indication: Oesophageal adenocarcinoma
     Dosage: DOSE DESCRIPTION : D1: 8 MG/KG, IV; 6 MG/KG IV D22/D43 PRE- AND POST-OP, AFTERWARDS 6 MG/KG IV D1...
     Route: 042
     Dates: start: 20231106, end: 20240610
  6. LEUCOVORIN [Suspect]
     Active Substance: LEUCOVORIN\LEUCOVORIN CALCIUM
     Indication: Oesophageal adenocarcinoma
     Route: 042
     Dates: start: 20231106, end: 20240404

REACTIONS (2)
  - Impaired gastric emptying [Recovered/Resolved]
  - Off label use [Unknown]

NARRATIVE: CASE EVENT DATE: 20240625
